FAERS Safety Report 6594775-3 (Version None)
Quarter: 2010Q1

REPORT INFORMATION
  Report Type: 
  Country: None (occurrence: None)
  Receive Date: 20100222
  Receipt Date: 20100212
  Transmission Date: 20100710
  Serious: Yes (Other)
  Sender: FDA-Public Use
  Company Number: JP-ABBOTT-09P-087-0615678-00

PATIENT
  Age: 36 Year
  Sex: Male

DRUGS (23)
  1. EURODIN [Suspect]
     Indication: DRUG USE FOR UNKNOWN INDICATION
     Route: 048
  2. HALOPERIDOL [Concomitant]
     Indication: DRUG USE FOR UNKNOWN INDICATION
     Route: 048
     Dates: start: 19950401
  3. HALOPERIDOL [Concomitant]
     Route: 048
     Dates: end: 20031001
  4. HALOPERIDOL [Concomitant]
     Route: 048
     Dates: start: 20031001, end: 20040101
  5. HALOPERIDOL [Concomitant]
     Route: 048
     Dates: start: 20040101
  6. LEVOMEPROMAZINE MALEATE [Concomitant]
     Indication: DRUG USE FOR UNKNOWN INDICATION
     Route: 048
     Dates: start: 19950401
  7. LEVOMEPROMAZINE MALEATE [Concomitant]
     Route: 048
     Dates: end: 20040101
  8. LEVOMEPROMAZINE MALEATE [Concomitant]
     Route: 048
     Dates: start: 20040101
  9. ZOTEPINE [Concomitant]
     Indication: DRUG USE FOR UNKNOWN INDICATION
     Route: 048
     Dates: start: 19950401
  10. ZOTEPINE [Concomitant]
     Route: 048
     Dates: end: 20040101
  11. CARBAMAZEPINE [Concomitant]
     Indication: DRUG USE FOR UNKNOWN INDICATION
     Route: 048
     Dates: start: 19950401
  12. PROMETHAZINE [Concomitant]
     Indication: DRUG USE FOR UNKNOWN INDICATION
     Route: 065
  13. BIPERIDEN HYDROCHLORIDE [Concomitant]
     Indication: DRUG USE FOR UNKNOWN INDICATION
     Route: 065
  14. MAGNESIUM OXIDE [Concomitant]
     Indication: DRUG USE FOR UNKNOWN INDICATION
     Route: 048
  15. ETILEPRINE HYDROCHLORIDE [Concomitant]
     Indication: DRUG USE FOR UNKNOWN INDICATION
     Route: 065
  16. NITRAZEPAM [Concomitant]
     Indication: DRUG USE FOR UNKNOWN INDICATION
     Route: 048
  17. BROTIZOLAM [Concomitant]
     Indication: DRUG USE FOR UNKNOWN INDICATION
     Route: 048
  18. TRIAZOLAM [Concomitant]
     Indication: DRUG USE FOR UNKNOWN INDICATION
     Route: 048
  19. ZOPLICONE [Concomitant]
     Indication: DRUG USE FOR UNKNOWN INDICATION
     Route: 048
  20. HALOPERIDOL [Concomitant]
     Route: 030
  21. HALOPERIDOL [Concomitant]
     Route: 030
     Dates: start: 20031001, end: 20031117
  22. LEVOMEPROMAZINE HYDROCHLORIDE [Concomitant]
     Indication: DRUG USE FOR UNKNOWN INDICATION
     Route: 030
     Dates: start: 20031001, end: 20031117
  23. LEVOMEPROMAZINE HYDROCHLORIDE [Concomitant]
     Route: 030
     Dates: start: 20031001, end: 20031117

REACTIONS (3)
  - AGITATION [None]
  - POLYDIPSIA [None]
  - WATER INTOXICATION [None]
